FAERS Safety Report 4636655-6 (Version None)
Quarter: 2005Q2

REPORT INFORMATION
  Report Type: 
  Country: None (occurrence: None)
  Receive Date: 20050414
  Receipt Date: 20050406
  Transmission Date: 20051028
  Serious: Yes (Other)
  Sender: FDA-Public Use
  Company Number: SU-2005-003411

PATIENT
  Sex: Male

DRUGS (5)
  1. OLMETEC [Suspect]
     Indication: HYPERTENSION
     Dosage: 20 MG QD PO
     Route: 048
     Dates: start: 20050101, end: 20050301
  2. ATENOLOL ^ALIUD PHARMA^ [Concomitant]
  3. METFORMIN HCL [Concomitant]
  4. LASIX [Concomitant]
  5. NORVASC [Concomitant]

REACTIONS (3)
  - BLOOD PRESSURE FLUCTUATION [None]
  - COUGH [None]
  - DRUG INEFFECTIVE [None]
